FAERS Safety Report 9278309 (Version 4)
Quarter: 2013Q4

REPORT INFORMATION
  Report Type: Report from Study
  Country: FR (occurrence: FR)
  Receive Date: 20130508
  Receipt Date: 20131018
  Transmission Date: 20140711
  Serious: Yes (Death, Life-Threatening, Hospitalization)
  Sender: FDA-Public Use
  Company Number: FR-SANOFI-AVENTIS-2013SA039555

PATIENT
  Age: 52 Year
  Sex: Male

DRUGS (17)
  1. DOCETAXEL [Suspect]
     Indication: NON-SMALL CELL LUNG CANCER STAGE IV
     Route: 042
     Dates: start: 20121212
  2. DOCETAXEL [Suspect]
     Indication: NON-SMALL CELL LUNG CANCER STAGE IV
     Route: 042
     Dates: start: 20130327, end: 20130424
  3. BLINDED THERAPY [Suspect]
     Indication: NON-SMALL CELL LUNG CANCER STAGE IV
     Dosage: DOSE: OVER 60 MINUTES
     Route: 042
     Dates: start: 20121212
  4. BLINDED THERAPY [Suspect]
     Indication: NON-SMALL CELL LUNG CANCER STAGE IV
     Dosage: DOSE: OVER 60 MINUTES
     Route: 042
     Dates: start: 20130327, end: 20130424
  5. AMLODIPINE [Concomitant]
     Indication: HYPERTENSION
     Dates: start: 20120821
  6. INNOHEP [Concomitant]
     Indication: THROMBOSIS PROPHYLAXIS
     Dates: start: 201205
  7. SKENAN [Concomitant]
     Indication: BACK PAIN
     Dates: start: 201206, end: 20130408
  8. DIFFU K [Concomitant]
     Indication: HYPOKALAEMIA
     Dates: start: 201205
  9. LYRICA [Concomitant]
     Indication: ANXIETY
     Dates: start: 201205
  10. OMEPRAZOLE [Concomitant]
     Indication: PEPTIC ULCER
     Dates: start: 201209, end: 201304
  11. PARACETAMOL [Concomitant]
     Indication: PAIN
     Dates: start: 201205
  12. SOLUPRED [Concomitant]
     Indication: PAIN
     Dates: start: 201205
  13. PRIMPERAN [Concomitant]
     Indication: NAUSEA
     Dates: start: 20121212
  14. ONDANSETRON [Concomitant]
  15. PREDNISOLONE [Concomitant]
  16. SPASFON [Concomitant]
     Dates: start: 201303
  17. TIORFAN [Concomitant]

REACTIONS (4)
  - Cardio-respiratory arrest [Fatal]
  - Abdominal pain [Recovered/Resolved]
  - Vomiting [Recovered/Resolved]
  - Diarrhoea [Recovered/Resolved]
